FAERS Safety Report 5804900-7 (Version None)
Quarter: 2008Q3

REPORT INFORMATION
  Report Type: 
  Country: None (occurrence: None)
  Receive Date: 20080709
  Receipt Date: 20080627
  Transmission Date: 20090109
  Serious: Yes (Other)
  Sender: FDA-Public Use
  Company Number: US-PFIZER INC-2008033430

PATIENT
  Sex: Female
  Weight: 54.4 kg

DRUGS (9)
  1. XALATAN [Suspect]
     Indication: INTRAOCULAR PRESSURE INCREASED
     Route: 047
  2. HYDROCHLOROTHIAZIDE [Suspect]
     Indication: HYPERTENSION
     Dates: start: 20080101, end: 20080101
  3. SYNTHROID [Concomitant]
  4. ALTACE [Concomitant]
  5. SITAGLIPTIN [Concomitant]
  6. LIPITOR [Concomitant]
  7. FOLIC ACID [Concomitant]
  8. ACTONEL [Concomitant]
  9. AVANDIA [Concomitant]

REACTIONS (9)
  - BLOOD PRESSURE DECREASED [None]
  - BLOOD PRESSURE INCREASED [None]
  - DRY EYE [None]
  - EYE DISORDER [None]
  - EYE PAIN [None]
  - FOOT FRACTURE [None]
  - PHOTOPHOBIA [None]
  - RASH [None]
  - RENAL DISORDER [None]
